FAERS Safety Report 9522435 (Version 1)
Quarter: 2013Q3

REPORT INFORMATION
  Report Type: Spontaneous
  Country: US (occurrence: US)
  Receive Date: 20130913
  Receipt Date: 20130913
  Transmission Date: 20140515
  Serious: No
  Sender: FDA-Public Use
  Company Number: US-PFIZER INC-2013262545

PATIENT
  Sex: Female
  Weight: 73.47 kg

DRUGS (3)
  1. LIPITOR [Suspect]
     Indication: BLOOD CHOLESTEROL INCREASED
     Dosage: UNK
  2. LIPITOR [Suspect]
     Dosage: 80 MG, 1X/DAY
     Dates: end: 2012
  3. DIOVAN (VALSARTAN) [Concomitant]
     Indication: HYPERTENSION
     Dosage: 12.5 MG, 1X/DAY

REACTIONS (2)
  - Drug ineffective [Unknown]
  - Arthralgia [Recovered/Resolved]
